FAERS Safety Report 6291927-7 (Version None)
Quarter: 2009Q3

REPORT INFORMATION
  Report Type: 
  Country: None (occurrence: None)
  Receive Date: 20090729
  Receipt Date: 20090727
  Transmission Date: 20100115
  Serious: Yes (Other)
  Sender: FDA-Public Use
  Company Number: 2009SP012238

PATIENT
  Age: 40 Year
  Sex: Male

DRUGS (3)
  1. PEG-INTRON [Suspect]
     Indication: HEPATITIS C
     Dosage: SC
     Route: 058
     Dates: start: 20090403
  2. RIBASPHERE [Suspect]
     Dosage: 1200 MG;QD;PO
     Route: 048
     Dates: start: 20090101
  3. RIBASPHERE [Suspect]
     Dosage: 1200 MG;QD;PO
     Route: 048
     Dates: start: 20090403

REACTIONS (27)
  - ANAEMIA [None]
  - ASTHMA [None]
  - CONSTIPATION [None]
  - CONVULSION [None]
  - COUGH [None]
  - DECREASED APPETITE [None]
  - DEHYDRATION [None]
  - DEPRESSION [None]
  - DISORIENTATION [None]
  - DIZZINESS [None]
  - DRY MOUTH [None]
  - FEELING ABNORMAL [None]
  - HEADACHE [None]
  - IMMUNE SYSTEM DISORDER [None]
  - INSOMNIA [None]
  - IRRITABILITY [None]
  - LOSS OF CONSCIOUSNESS [None]
  - NAUSEA [None]
  - OROPHARYNGEAL PAIN [None]
  - POLLAKIURIA [None]
  - POLYDIPSIA [None]
  - PRESYNCOPE [None]
  - SINUS CONGESTION [None]
  - SINUSITIS [None]
  - VISION BLURRED [None]
  - WEIGHT DECREASED [None]
  - WHITE BLOOD CELL COUNT DECREASED [None]
